FAERS Safety Report 7272930-7 (Version None)
Quarter: 2011Q1

REPORT INFORMATION
  Report Type: 
  Country: None (occurrence: None)
  Receive Date: 20110203
  Receipt Date: 20110131
  Transmission Date: 20110831
  Serious: Yes (Other)
  Sender: FDA-Public Use
  Company Number: US-AMGEN-USASP2011006097

PATIENT
  Sex: Male
  Weight: 115.56 kg

DRUGS (4)
  1. DOXAZOSIN [Concomitant]
  2. NPLATE [Suspect]
     Indication: IDIOPATHIC THROMBOCYTOPENIC PURPURA
     Dosage: 100 A?G, UNK
     Dates: start: 20100408
  3. VITAMIN B12                        /00056201/ [Concomitant]
     Dosage: 1 MG, QD
     Route: 060
  4. LASIX [Concomitant]

REACTIONS (5)
  - WEIGHT DECREASED [None]
  - OEDEMA PERIPHERAL [None]
  - FLUID RETENTION [None]
  - ECCHYMOSIS [None]
  - FATIGUE [None]
